FAERS Safety Report 16335100 (Version 1)
Quarter: 2019Q2

REPORT INFORMATION
  Report Type: Report from Study
  Country: None (occurrence: AU)
  Receive Date: 20190520
  Receipt Date: 20190520
  Transmission Date: 20190711
  Serious: Yes (Other)
  Sender: FDA-Public Use
  Company Number: AU-ABBVIE-19S-008-2778067-00

PATIENT
  Sex: Male
  Weight: 75.3 kg

DRUGS (1)
  1. LUCRIN DEPOT [Suspect]
     Active Substance: LEUPROLIDE ACETATE
     Indication: PRODUCT USED FOR UNKNOWN INDICATION
     Route: 030

REACTIONS (7)
  - Balance disorder [Unknown]
  - Lumbar vertebral fracture [Unknown]
  - Fall [Unknown]
  - Pain [Unknown]
  - Back pain [Unknown]
  - Sciatica [Unknown]
  - Weight bearing difficulty [Unknown]
